FAERS Safety Report 11190846 (Version 1)
Quarter: 2015Q2

REPORT INFORMATION
  Report Type: Spontaneous
  Country: US (occurrence: US)
  Receive Date: 20150615
  Receipt Date: 20150615
  Transmission Date: 20150821
  Serious: No
  Sender: FDA-Public Use
  Company Number: US-TAKEDA-2015TUS007511

PATIENT
  Sex: Female
  Weight: 63.49 kg

DRUGS (1)
  1. CONTRAVE [Suspect]
     Active Substance: BUPROPION HYDROCHLORIDE\NALTREXONE HYDROCHLORIDE
     Indication: WEIGHT CONTROL
     Dosage: 1 DF, QD
     Route: 048
     Dates: start: 20150323, end: 20150330

REACTIONS (4)
  - Impaired work ability [Recovered/Resolved]
  - Catatonia [Recovered/Resolved]
  - Amnesia [Recovered/Resolved]
  - Feeling abnormal [Recovered/Resolved]
